FAERS Safety Report 12772596 (Version 2)
Quarter: 2016Q3

REPORT INFORMATION
  Report Type: Spontaneous
  Country: JP (occurrence: JP)
  Receive Date: 20160922
  Receipt Date: 20160930
  Transmission Date: 20161109
  Serious: Yes (Death, Other)
  Sender: FDA-Public Use
  Company Number: PHJP2016JP026937

PATIENT
  Age: 70 Year
  Sex: Male

DRUGS (1)
  1. NEORAL [Suspect]
     Active Substance: CYCLOSPORINE
     Indication: INTERSTITIAL LUNG DISEASE
     Dosage: 75 MG, BID
     Route: 048
     Dates: start: 20160909

REACTIONS (3)
  - Product use issue [Unknown]
  - Death [Fatal]
  - Bone marrow failure [Unknown]

NARRATIVE: CASE EVENT DATE: 201609
